FAERS Safety Report 9659548 (Version 2)
Quarter: 2013Q4

REPORT INFORMATION
  Report Type: Spontaneous
  Country: BR (occurrence: BR)
  Receive Date: 20131031
  Receipt Date: 20131126
  Transmission Date: 20140711
  Serious: Yes (Other)
  Sender: FDA-Public Use
  Company Number: BR-ASTRAZENECA-2013SE78346

PATIENT
  Age: 72 Year
  Sex: Male
  Weight: 90 kg

DRUGS (5)
  1. ATENOLOL + CHLORTHALIDONE [Suspect]
     Indication: HYPERTENSION
     Dosage: 50/12.5 MG, DAILY
     Route: 048
     Dates: start: 1993
  2. VIMOVO [Suspect]
     Indication: OSTEOARTHRITIS
     Dosage: 500 MG + 20 MG
     Route: 048
     Dates: start: 20131021
  3. DIAMICRON [Concomitant]
     Indication: GLUCOSE TOLERANCE IMPAIRED
     Dates: start: 2010
  4. DIOVAN AMLO [Concomitant]
     Indication: HYPERTENSION
     Dosage: 160/5 MG, DAILY
     Dates: start: 2011
  5. GALVUS [Concomitant]
     Indication: GLUCOSE TOLERANCE IMPAIRED
     Dates: start: 201304

REACTIONS (6)
  - Osteoarthritis [Recovered/Resolved]
  - Spinal osteoarthritis [Recovered/Resolved]
  - Glucose tolerance impaired [Recovered/Resolved]
  - Hyperglycaemia [Recovered/Resolved]
  - Blood pressure increased [Not Recovered/Not Resolved]
  - Drug ineffective [Unknown]
